FAERS Safety Report 4303968-7 (Version None)
Quarter: 2004Q1

REPORT INFORMATION
  Report Type: 
  Country: None (occurrence: None)
  Receive Date: 20040223
  Receipt Date: 20031205
  Transmission Date: 20041129
  Serious: No
  Sender: FDA-Public Use
  Company Number: PHEH2003US10631

PATIENT
  Age: 65 Year
  Sex: Male
  Weight: 122.4 kg

DRUGS (2)
  1. ZELNORM [Suspect]
     Indication: CONSTIPATION
     Dosage: 6 MG, BID, ORAL
     Route: 048
     Dates: start: 20031111
  2. ACETYLSALICYLIC ACID SRT [Concomitant]

REACTIONS (1)
  - BLOOD URINE [None]
